FAERS Safety Report 9280439 (Version 2)
Quarter: 2013Q1

REPORT INFORMATION
  Report Type: Spontaneous
  Country: US (occurrence: None)
  Receive Date: 20130122
  Receipt Date: 20130225
  Transmission Date: 20140127
  Serious: Yes (Other)
  Sender: FDA-Public Use
  Company Number: 2013-00016

PATIENT
  Age: 44 Year
  Sex: Female
  Weight: 90.72 kg

DRUGS (1)
  1. ZICAM EXTREME CONGESTION RELIEF [Suspect]
     Indication: NASAL CONGESTION
     Dosage: 1 SPRAY EACH NOSTRIL
     Dates: start: 201212

REACTIONS (2)
  - Pharyngeal oedema [None]
  - Hypersensitivity [None]
